FAERS Safety Report 10086276 (Version 1)
Quarter: 2014Q2

REPORT INFORMATION
  Report Type: Spontaneous
  Country: CN (occurrence: CN)
  Receive Date: 20140418
  Receipt Date: 20140418
  Transmission Date: 20141212
  Serious: Yes (Hospitalization)
  Sender: FDA-Public Use
  Company Number: CN-SA-2014SA048521

PATIENT
  Age: 82 Year
  Sex: Female

DRUGS (3)
  1. STILNOX [Suspect]
     Indication: INSOMNIA
     Route: 048
  2. STILNOX [Suspect]
     Indication: INSOMNIA
     Route: 048
     Dates: start: 20140208
  3. DIAZEPAM [Concomitant]
     Route: 048
     Dates: start: 20140208

REACTIONS (3)
  - Adverse event [Unknown]
  - Coma [Not Recovered/Not Resolved]
  - Overdose [Unknown]
